FAERS Safety Report 6813184-2 (Version None)
Quarter: 2010Q3

REPORT INFORMATION
  Report Type: 
  Country: None (occurrence: None)
  Receive Date: 20100701
  Receipt Date: 20100623
  Transmission Date: 20110219
  Serious: Yes (Hospitalization)
  Sender: FDA-Public Use
  Company Number: JP-ABBOTT-08P-087-0470025-00

PATIENT
  Age: 74 Year
  Sex: Male

DRUGS (11)
  1. LEUPROLIDE ACETATE [Suspect]
     Indication: PROSTATE CANCER STAGE II
     Route: 058
     Dates: start: 20070814
  2. AVISHOT [Concomitant]
     Indication: DYSURIA
     Route: 048
  3. GASTER D [Concomitant]
     Indication: GASTRITIS
     Route: 048
     Dates: start: 20070913
  4. PYRIDOXAL PHOSPHATE [Concomitant]
     Indication: PRODUCT USED FOR UNKNOWN INDICATION
  5. ISONIAZID [Concomitant]
     Indication: PRODUCT USED FOR UNKNOWN INDICATION
  6. SULFAMETHOXAZOLE AND TRIMETHOPRIM [Concomitant]
     Indication: PRODUCT USED FOR UNKNOWN INDICATION
     Dosage: 4 T/DAY, TWICE/WEEK
  7. HARNAL [Concomitant]
     Indication: DYSURIA
     Route: 048
     Dates: start: 20080731
  8. PURSENNID [Concomitant]
     Indication: CONSTIPATION
     Route: 048
  9. SPIRIVA [Concomitant]
     Indication: ASTHMA
     Route: 055
     Dates: start: 20080910
  10. SEREVENT [Concomitant]
     Indication: ASTHMA
     Route: 055
     Dates: start: 20081015
  11. BISOLVON [Concomitant]
     Indication: ASTHMA
     Route: 048
     Dates: start: 20090715

REACTIONS (1)
  - T-CELL LYMPHOMA [None]
